FAERS Safety Report 7084293-0 (Version None)
Quarter: 2010Q4

REPORT INFORMATION
  Report Type: 
  Country: None (occurrence: None)
  Receive Date: 20101104
  Receipt Date: 20101025
  Transmission Date: 20110411
  Serious: Yes (Hospitalization)
  Sender: FDA-Public Use
  Company Number: FR-PFIZER INC-2010135029

PATIENT
  Age: 68 Year
  Sex: Male

DRUGS (6)
  1. LYRICA [Suspect]
     Dosage: 75 MG, 3X/DAY
     Route: 048
     Dates: end: 20100810
  2. MUPHORAN [Suspect]
     Indication: MALIGNANT MELANOMA
     Dosage: 13 CURES
     Route: 042
     Dates: start: 20090701, end: 20100701
  3. LEXOMIL [Suspect]
     Dosage: 1.5 MG, 2X/DAY
     Route: 048
  4. IXPRIM [Suspect]
     Dosage: UNK
     Route: 048
  5. NEXIUM [Suspect]
     Dosage: 20 MG, 2X/DAY
     Route: 048
  6. DOMPERIDONE [Suspect]
     Dosage: 10 MG, 4X/DAY
     Route: 048

REACTIONS (1)
  - LEUKOENCEPHALOPATHY [None]
